FAERS Safety Report 10026356 (Version 1)
Quarter: 2014Q1

REPORT INFORMATION
  Report Type: Spontaneous
  Country: US (occurrence: US)
  Receive Date: 20140321
  Receipt Date: 20140321
  Transmission Date: 20141002
  Serious: No
  Sender: FDA-Public Use
  Company Number: US-ALLERGAN-1308261US

PATIENT
  Sex: Female

DRUGS (2)
  1. LUMIGAN [Suspect]
     Indication: GROWTH OF EYELASHES
  2. BOSTON RECONDITIONING SOLUTIONS [Concomitant]
     Indication: DRY EYE

REACTIONS (2)
  - Off label use [Unknown]
  - Drug ineffective [Unknown]
